FAERS Safety Report 24551059 (Version 1)
Quarter: 2024Q4

REPORT INFORMATION
  Report Type: Spontaneous
  Country: FR (occurrence: FR)
  Receive Date: 20241025
  Receipt Date: 20241025
  Transmission Date: 20250115
  Serious: Yes (Hospitalization)
  Sender: TEVA
  Company Number: None

PATIENT
  Age: 2 Year
  Sex: Male
  Weight: 13.3 kg

DRUGS (3)
  1. AMOXICILLIN [Suspect]
     Active Substance: AMOXICILLIN
     Indication: Ear infection
     Route: 048
     Dates: start: 20240917, end: 20240925
  2. ACETAMINOPHEN\GUAIFENESIN\OXOMEMAZINE\SODIUM BENZOATE [Suspect]
     Active Substance: ACETAMINOPHEN\GUAIFENESIN\OXOMEMAZINE\SODIUM BENZOATE
     Indication: Ear infection
     Dosage: NOT SPECIFIED
     Route: 048
     Dates: start: 20240917
  3. TIXOCORTOL PIVALATE [Suspect]
     Active Substance: TIXOCORTOL PIVALATE
     Indication: Ear infection
     Dosage: NOT SPECIFIED, NASAL SUSPENSION
     Route: 048
     Dates: start: 20240917

REACTIONS (2)
  - Rash macular [Not Recovered/Not Resolved]
  - Pyrexia [Not Recovered/Not Resolved]

NARRATIVE: CASE EVENT DATE: 20240924
